FAERS Safety Report 10345644 (Version 2)
Quarter: 2014Q3

REPORT INFORMATION
  Report Type: Report from Study
  Country: US (occurrence: US)
  Receive Date: 20140728
  Receipt Date: 20140728
  Transmission Date: 20150326
  Serious: Yes (Hospitalization, Other)
  Sender: FDA-Public Use
  Company Number: PHEH2014US010962

PATIENT
  Age: 65 Year
  Sex: Male
  Weight: 111.5 kg

DRUGS (26)
  1. KLOR-CON M20 [Concomitant]
     Active Substance: POTASSIUM CHLORIDE
     Dosage: 1 DF, BID
     Route: 048
  2. INDAPAMIDE. [Concomitant]
     Active Substance: INDAPAMIDE
     Dosage: 1 DF, QD
     Route: 048
  3. LIPITOR [Concomitant]
     Active Substance: ATORVASTATIN CALCIUM
     Dosage: 1 DF, AT BED TIME
     Route: 048
  4. LISINOPRIL. [Concomitant]
     Active Substance: LISINOPRIL
     Dosage: 10 MG, QD EVERY DAY
     Route: 048
  5. PROGRAF [Concomitant]
     Active Substance: TACROLIMUS\TACROLIMUS ANHYDROUS
     Dosage: 0.5 DF, BID
     Route: 048
  6. PREDNISONE. [Concomitant]
     Active Substance: PREDNISONE
     Dosage: 1 DF, QD (FOOD OR MILK)
  7. METOPROLOL TARTRATE. [Concomitant]
     Active Substance: METOPROLOL TARTRATE
     Dosage: 1 DF, QD
  8. TRAZODONE [Concomitant]
     Active Substance: TRAZODONE HYDROCHLORIDE
     Dosage: 1 DF, QD
  9. RINSULIN R [Concomitant]
     Dosage: UNK UKN, UNK (SS AS NEEDED)
     Route: 058
  10. VITAMIN D3 [Concomitant]
     Active Substance: CHOLECALCIFEROL
     Dosage: 1 DF, QD
  11. ALLOPURINOL. [Concomitant]
     Active Substance: ALLOPURINOL
     Dosage: 1 DF, QD
     Route: 048
  12. METOLAZONE. [Concomitant]
     Active Substance: METOLAZONE
     Dosage: 2.5 MG, WEEKLY
     Route: 048
  13. LEVAQUIN [Concomitant]
     Active Substance: LEVOFLOXACIN
     Dosage: 1.5 DF, UNK
     Route: 048
  14. NOVOLIN R [Concomitant]
     Active Substance: INSULIN HUMAN
     Dosage: 100 U/ML, UNK
  15. ASA [Concomitant]
     Active Substance: ASPIRIN
     Dosage: 81 MG, EVERY DAY
     Route: 048
  16. RANITIDINE [Concomitant]
     Active Substance: RANITIDINE\RANITIDINE HYDROCHLORIDE
     Dosage: 1 DF, BID
     Route: 048
  17. LORTAB [Concomitant]
     Active Substance: ACETAMINOPHEN\HYDROCODONE BITARTRATE
     Dosage: 1 DF, Q6H (10 TO 500 AS NEEDED)
  18. LEVITRA [Concomitant]
     Active Substance: VARDENAFIL HYDROCHLORIDE TRIHYDRATE
     Dosage: 10 MG, AS NEEDED
  19. OMEPRAZOLE. [Concomitant]
     Active Substance: OMEPRAZOLE
     Dosage: 1 DF, QD
  20. ASPIRIN. [Concomitant]
     Active Substance: ASPIRIN
     Dosage: 1 DF, QD
  21. MYFORTIC [Suspect]
     Active Substance: MYCOPHENOLATE SODIUM
     Indication: COMPLICATIONS OF TRANSPLANTED KIDNEY
     Dosage: 360 MG, BID
     Route: 048
     Dates: start: 200805
  22. CALCITRIOL. [Concomitant]
     Active Substance: CALCITRIOL
     Dosage: 1 DF, QD
     Route: 048
  23. LASIX [Concomitant]
     Active Substance: FUROSEMIDE
     Dosage: 1 DF, QD
  24. MYFORTIC [Suspect]
     Active Substance: MYCOPHENOLATE SODIUM
     Indication: RENAL TRANSPLANT
  25. SINGULAIR [Concomitant]
     Active Substance: MONTELUKAST SODIUM
     Dosage: 1 DF, QD (ONCE A DAY IN EVENING)
  26. POTASSIUM CHLORIDE. [Concomitant]
     Active Substance: POTASSIUM CHLORIDE
     Dosage: 1 DF, QD (ONCE A DAY)

REACTIONS (22)
  - Urinary tract infection [Recovering/Resolving]
  - Kidney transplant rejection [Unknown]
  - Swelling [Unknown]
  - Nephrolithiasis [Unknown]
  - Dysuria [Unknown]
  - Cardiomegaly [Unknown]
  - Haemorrhoids [Unknown]
  - Calculus urinary [Unknown]
  - Renal atrophy [Unknown]
  - Suprapubic pain [Unknown]
  - Hypertonic bladder [Unknown]
  - Ear disorder [Unknown]
  - Epididymitis [Unknown]
  - Hydronephrosis [Unknown]
  - Oedema peripheral [Unknown]
  - Haematuria [Recovering/Resolving]
  - Urethritis [Unknown]
  - Tenderness [Unknown]
  - Erythema [Unknown]
  - Diverticulum [Unknown]
  - Pyelonephritis [Unknown]
  - Atelectasis [Unknown]

NARRATIVE: CASE EVENT DATE: 201309
